FAERS Safety Report 18756738 (Version 1)
Quarter: 2021Q1

REPORT INFORMATION
  Report Type: Spontaneous
  Country: US (occurrence: US)
  Receive Date: 20210119
  Receipt Date: 20210119
  Transmission Date: 20210419
  Serious: Yes (Hospitalization)
  Sender: FDA-Public Use
  Company Number: US-MELINTA THERAPEUTICS, INC-US-MLNT-21-00002

PATIENT
  Age: 45 Year
  Sex: Female

DRUGS (2)
  1. MINOCYCLINE [Suspect]
     Active Substance: MINOCYCLINE HYDROCHLORIDE
     Dosage: NOT PROVIDED.
  2. MINOCYCLINE [Suspect]
     Active Substance: MINOCYCLINE HYDROCHLORIDE
     Indication: ACNE
     Dosage: NOT PROVIDED.

REACTIONS (4)
  - Haemolytic anaemia [Recovered/Resolved]
  - Pigment nephropathy [Recovered/Resolved]
  - Thrombocytopenia [Recovered/Resolved]
  - Acute kidney injury [Recovered/Resolved]
